FAERS Safety Report 23847914 (Version 1)
Quarter: 2024Q2

REPORT INFORMATION
  Report Type: Spontaneous
  Country: ES (occurrence: ES)
  Receive Date: 20240513
  Receipt Date: 20240513
  Transmission Date: 20240716
  Serious: Yes (Other)
  Sender: FDA-Public Use
  Company Number: None

PATIENT
  Age: 57 Year
  Sex: Female

DRUGS (6)
  1. BIKTARVY [Suspect]
     Active Substance: BICTEGRAVIR SODIUM\EMTRICITABINE\TENOFOVIR ALAFENAMIDE FUMARATE
     Indication: Asymptomatic HIV infection
     Dosage: 1 TABLET/24 ??HOURS
     Route: 048
     Dates: start: 20240110, end: 20240209
  2. ESCITALOPRAM [Concomitant]
     Active Substance: ESCITALOPRAM OXALATE
     Indication: Anxiety
     Dosage: 20MG/24H
     Route: 048
     Dates: start: 20191009
  3. OMEPRAZOLE [Concomitant]
     Active Substance: DONEPEZIL HYDROCHLORIDE\OMEPRAZOLE\OMEPRAZOLE MAGNESIUM
     Indication: Arthralgia
     Dosage: 20MG/A-DE
     Route: 048
     Dates: start: 20210316
  4. FLUOXETINE HYDROCHLORIDE [Concomitant]
     Active Substance: FLUOXETINE HYDROCHLORIDE
     Indication: Nervousness
     Dosage: 100MG/24H
     Route: 048
     Dates: start: 20191008
  5. ANTIDOL [PARACETAMOL] [Concomitant]
     Indication: Sciatica
     Dosage: 1G/8H SI PRECISA
     Route: 048
     Dates: start: 20231006
  6. DIAZEPAM [Concomitant]
     Active Substance: DIAZEPAM
     Indication: Nervousness
     Dosage: 5MG/12H
     Route: 048
     Dates: start: 20181219

REACTIONS (2)
  - Anxiety [Recovering/Resolving]
  - Insomnia [Recovering/Resolving]

NARRATIVE: CASE EVENT DATE: 20240124
